FAERS Safety Report 4443294-9 (Version None)
Quarter: 2004Q3

REPORT INFORMATION
  Report Type: 
  Country: None (occurrence: None)
  Receive Date: 20040728
  Receipt Date: 20040520
  Transmission Date: 20050211
  Serious: No
  Sender: FDA-Public Use
  Company Number: USA040568187

PATIENT
  Age: 17 Year
  Sex: Female
  Weight: 65 kg

DRUGS (1)
  1. STRATTERA [Suspect]
     Dosage: 25 MG DAY
     Dates: start: 20040408

REACTIONS (4)
  - DRUG INEFFECTIVE [None]
  - FATIGUE [None]
  - MOOD SWINGS [None]
  - NEGATIVISM [None]
